FAERS Safety Report 9068281 (Version 1)
Quarter: 2013Q1

REPORT INFORMATION
  Report Type: Spontaneous
  Country: IT (occurrence: IT)
  Receive Date: 20130128
  Receipt Date: 20130128
  Transmission Date: 20140127
  Serious: Yes (Hospitalization)
  Sender: FDA-Public Use
  Company Number: IT-PFIZER INC-2013031559

PATIENT
  Age: 61 Year
  Sex: Male
  Weight: 83 kg

DRUGS (4)
  1. SOMAVERT [Suspect]
     Indication: ACROMEGALY
     Dosage: 10 MG, 1X/DAY
     Route: 058
     Dates: start: 20101001, end: 20130110
  2. IPSTYL [Suspect]
     Indication: ACROMEGALY
     Dosage: 120 MG, MONTHLY
     Route: 030
     Dates: start: 20110606, end: 20130110
  3. TESTOSTERONE [Concomitant]
     Indication: SECONDARY HYPOGONADISM
     Dosage: 50 MG, 1X/DAY
     Route: 058
     Dates: start: 20081001, end: 20130110
  4. EUTIROX [Concomitant]
     Indication: SECONDARY HYPERTHYROIDISM
     Dosage: 125 UG, UNK
     Route: 048
     Dates: start: 20080601, end: 20130110

REACTIONS (1)
  - Cavernous sinus thrombosis [Recovering/Resolving]
